FAERS Safety Report 5951918-X (Version None)
Quarter: 2008Q4

REPORT INFORMATION
  Report Type: 
  Country: None (occurrence: None)
  Receive Date: 20081113
  Receipt Date: 20081031
  Transmission Date: 20090506
  Serious: Yes (Hospitalization)
  Sender: FDA-Public Use
  Company Number: CA-ELI_LILLY_AND_COMPANY-CA200807006147

PATIENT
  Age: 73 Year
  Sex: Female
  Weight: 58.957 kg

DRUGS (6)
  1. ZYPREXA [Suspect]
     Indication: DEMENTIA
     Dosage: 10 MG, 2/D
     Route: 048
     Dates: start: 20050101
  2. ZYPREXA [Suspect]
     Dosage: 5 MG, 2/D
     Dates: start: 20080728
  3. COUMADIN [Concomitant]
     Dosage: 2 MG, DAILY (1/D)
  4. CALCIUM CARBONATE W/VITAMIN D /00944201/ [Concomitant]
     Dosage: UNK, 2/D
  5. ARICEPT [Concomitant]
     Dosage: 5 MG, DAILY (1/D)
  6. METOPROLOL TARTRATE [Concomitant]
     Dosage: 50 UNK, DAILY (1/D)

REACTIONS (1)
  - PARKINSONISM [None]
